FAERS Safety Report 4570721-9 (Version None)
Quarter: 2005Q1

REPORT INFORMATION
  Report Type: 
  Country: None (occurrence: None)
  Receive Date: 20050202
  Receipt Date: 20050120
  Transmission Date: 20050727
  Serious: No
  Sender: FDA-Public Use
  Company Number: 02100-JPN-05-0041

PATIENT
  Age: 71 Year
  Sex: Male

DRUGS (17)
  1. CILOSTAZOL [Suspect]
     Indication: CEREBRAL INFARCTION
     Dosage: 100 MG, ORAL
     Route: 048
     Dates: start: 20040426
  2. CEFDINIR [Suspect]
     Indication: UPPER RESPIRATORY TRACT INFLAMMATION
     Dosage: 300 MG, ORAL
     Route: 048
     Dates: start: 20040619, end: 20040625
  3. MOLSIN COMBINED DRUG [Concomitant]
  4. AZULENE SULFONATE SODIUM L-GLUTAMINE [Concomitant]
  5. IFENPRODIL TARTRATE [Concomitant]
  6. TOCOPHEROL CONCENTRATE CAP [Concomitant]
  7. MEFRUSIDE [Concomitant]
  8. LACTOBACILLUS BIFIDUS [Concomitant]
  9. CLARITHROMYCIN [Concomitant]
  10. SULPYRINE [Concomitant]
  11. CLEMASTNIE FUMARATE [Concomitant]
  12. DIMEORPFAN PHOSPHATE [Concomitant]
  13. LYSOZYME HYDROCHLORIDE [Concomitant]
  14. ANTITUSSIVE AND EXPECTORANTCOMBINED DRUG [Concomitant]
  15. FUDOSTEINE [Concomitant]
  16. FLAVINE ADENINE DINUCLEOTIDE [Concomitant]
  17. PRE-MEDICATION: IFENPRODIL TARTRATE [Concomitant]

REACTIONS (5)
  - CEREBRAL INFARCTION [None]
  - MYELODYSPLASTIC SYNDROME [None]
  - PARESIS [None]
  - STOMATITIS [None]
  - UPPER RESPIRATORY TRACT INFLAMMATION [None]
